FAERS Safety Report 8027322-X (Version None)
Quarter: 2012Q1

REPORT INFORMATION
  Report Type: 
  Country: None (occurrence: None)
  Receive Date: 20120105
  Receipt Date: 20120105
  Transmission Date: 20120608
  Serious: Yes (Disabling, Other)
  Sender: FDA-Public Use
  Company Number: None

PATIENT
  Age: 68 Year
  Sex: Male
  Weight: 105.2345 kg

DRUGS (1)
  1. AVELOX [Suspect]
     Indication: UPPER RESPIRATORY TRACT INFECTION
     Dosage: 400 MG 1 PER DAY ORAL
     Route: 048
     Dates: start: 20111208, end: 20111209

REACTIONS (8)
  - PAIN IN EXTREMITY [None]
  - GAIT DISTURBANCE [None]
  - DYSSTASIA [None]
  - EAR PAIN [None]
  - HALLUCINATION [None]
  - DYSURIA [None]
  - TEMPOROMANDIBULAR JOINT SYNDROME [None]
  - CHROMATURIA [None]
